FAERS Safety Report 22039737 (Version 1)
Quarter: 2023Q1

REPORT INFORMATION
  Report Type: Spontaneous
  Country: GB (occurrence: GB)
  Receive Date: 20230227
  Receipt Date: 20230227
  Transmission Date: 20230417
  Serious: Yes (Hospitalization)
  Sender: FDA-Public Use
  Company Number: GB-MYLANLABS-2023M1020888

PATIENT
  Age: 4 Decade
  Sex: Female

DRUGS (12)
  1. RISPERIDONE [Suspect]
     Active Substance: RISPERIDONE
     Indication: Pica
     Dosage: UNK
     Route: 065
  2. RISPERIDONE [Suspect]
     Active Substance: RISPERIDONE
     Indication: Psychotic disorder due to a general medical condition
  3. OLANZAPINE [Suspect]
     Active Substance: OLANZAPINE
     Indication: Pica
     Dosage: UNK
     Route: 065
  4. OLANZAPINE [Suspect]
     Active Substance: OLANZAPINE
     Indication: Psychotic disorder due to a general medical condition
  5. ARIPIPRAZOLE [Suspect]
     Active Substance: ARIPIPRAZOLE
     Indication: Pica
     Dosage: UNK
     Route: 065
  6. ARIPIPRAZOLE [Suspect]
     Active Substance: ARIPIPRAZOLE
     Indication: Psychotic disorder due to a general medical condition
  7. TRAMADOL [Suspect]
     Active Substance: TRAMADOL
     Indication: Social anxiety disorder
     Dosage: UNK
     Route: 065
  8. ASENAPINE [Suspect]
     Active Substance: ASENAPINE
     Indication: Pica
     Dosage: UNK
     Route: 065
  9. ASENAPINE [Suspect]
     Active Substance: ASENAPINE
     Indication: Psychotic disorder due to a general medical condition
  10. DEXEDRINE [Suspect]
     Active Substance: DEXTROAMPHETAMINE SULFATE
     Indication: Social anxiety disorder
     Dosage: UNK
     Route: 065
  11. HALOPERIDOL [Concomitant]
     Active Substance: HALOPERIDOL
     Indication: Pica
     Dosage: UNK
     Route: 065
  12. HALOPERIDOL [Concomitant]
     Active Substance: HALOPERIDOL
     Indication: Psychotic disorder due to a general medical condition

REACTIONS (4)
  - Drug ineffective for unapproved indication [Unknown]
  - Intentional product misuse [Unknown]
  - Treatment noncompliance [Unknown]
  - Off label use [Unknown]
